FAERS Safety Report 19498254 (Version 1)
Quarter: 2021Q3

REPORT INFORMATION
  Report Type: Spontaneous
  Country: US (occurrence: US)
  Receive Date: 20210706
  Receipt Date: 20210706
  Transmission Date: 20211014
  Serious: Yes (Hospitalization)
  Sender: FDA-Public Use
  Company Number: US-PFIZER INC-2021756900

PATIENT
  Age: 59 Year
  Sex: Male

DRUGS (1)
  1. ZYVOX [Suspect]
     Active Substance: LINEZOLID
     Dosage: UNK

REACTIONS (6)
  - Frequent bowel movements [Unknown]
  - Nausea [Recovered/Resolved]
  - Illness [Unknown]
  - Gait inability [Unknown]
  - Tongue disorder [Recovered/Resolved]
  - Oral disorder [Recovered/Resolved]
